FAERS Safety Report 6388879-8 (Version None)
Quarter: 2009Q4

REPORT INFORMATION
  Report Type: 
  Country: None (occurrence: None)
  Receive Date: 20091005
  Receipt Date: 20090922
  Transmission Date: 20100525
  Serious: Yes (Disabling)
  Sender: FDA-Public Use
  Company Number: MX-ABBOTT-09P-107-0597122-00

PATIENT
  Sex: Male
  Weight: 78 kg

DRUGS (2)
  1. KALETRA [Suspect]
     Indication: PROPHYLAXIS
     Dosage: 800/200 MG X2 EVERY 12 HOUR
     Route: 048
     Dates: start: 20090825, end: 20090925
  2. OMEPRAZOLE [Concomitant]
     Indication: GASTRODUODENITIS

REACTIONS (20)
  - ANGER [None]
  - CONFUSIONAL STATE [None]
  - DEPRESSION [None]
  - DYSPEPSIA [None]
  - EAR CONGESTION [None]
  - GASTRODUODENITIS [None]
  - GENITAL HERPES [None]
  - INFLAMMATION [None]
  - NASAL CONGESTION [None]
  - NAUSEA [None]
  - NIGHT SWEATS [None]
  - PALPITATIONS [None]
  - PRODUCTIVE COUGH [None]
  - RHINORRHOEA [None]
  - SKIN INDURATION [None]
  - SKIN PAPILLOMA [None]
  - SPUTUM DISCOLOURED [None]
  - SYNCOPE [None]
  - TACHYCARDIA [None]
  - VOMITING [None]
